FAERS Safety Report 6894943-7 (Version None)
Quarter: 2010Q3

REPORT INFORMATION
  Report Type: 
  Country: None (occurrence: None)
  Receive Date: 20100802
  Receipt Date: 20100726
  Transmission Date: 20110219
  Serious: No
  Sender: FDA-Public Use
  Company Number: MX-ROCHE-716369

PATIENT
  Sex: Female
  Weight: 58 kg

DRUGS (8)
  1. PEGINTERFERON ALFA-2A [Suspect]
     Indication: HEPATITIS C
     Route: 058
     Dates: start: 20091230
  2. RIBAVIRIN [Suspect]
     Indication: HEPATITIS C
     Dosage: 5 TABLETS DAILY
     Route: 048
     Dates: start: 20091230
  3. RAMIPRIL [Concomitant]
     Indication: HYPERTENSION
     Dosage: GHALF TABLET DAILY
     Route: 048
     Dates: start: 19900101
  4. INSULIN [Concomitant]
     Dosage: 10 UNIT DAILY
     Route: 058
     Dates: start: 20100501
  5. FUROSEMIDE/SPIRONOLACTONE [Concomitant]
     Dosage: 20 MG/50 MG, 1 TABLET EVERY 3 DAYS
     Route: 048
     Dates: start: 20100401
  6. CIPROFIBRATE [Concomitant]
     Dosage: 1 TABLET EVERY THREE DAYS
     Dates: start: 20100601
  7. FOLIC ACID [Concomitant]
     Indication: VITAMIN SUPPLEMENTATION
     Dates: start: 20100201
  8. ERYTHROPOIETINE [Concomitant]
     Indication: PLATELET COUNT
     Dosage: ONCE A WEEK
     Dates: start: 20100501

REACTIONS (9)
  - ABDOMINAL PAIN [None]
  - ASTHENIA [None]
  - BALANCE DISORDER [None]
  - BLOOD TRIGLYCERIDES INCREASED [None]
  - CONSTIPATION [None]
  - HEADACHE [None]
  - MUSCLE SPASMS [None]
  - MYALGIA [None]
  - NAUSEA [None]
